FAERS Safety Report 12396564 (Version 3)
Quarter: 2017Q4

REPORT INFORMATION
  Report Type: Report from Study
  Country: US (occurrence: US)
  Receive Date: 20160524
  Receipt Date: 20171117
  Transmission Date: 20180320
  Serious: Yes (Other)
  Sender: FDA-Public Use
  Company Number: US-AMGEN-USASL2016064831

PATIENT
  Age: 38 Year
  Sex: Female

DRUGS (4)
  1. ENBREL [Suspect]
     Active Substance: ETANERCEPT
     Indication: RHEUMATOID ARTHRITIS
     Dosage: 50 MG, QWK
     Route: 065
     Dates: start: 20171107
  2. SULFASALAZINE. [Concomitant]
     Active Substance: SULFASALAZINE
     Dosage: UNK
  3. ENBREL [Suspect]
     Active Substance: ETANERCEPT
     Indication: PSORIATIC ARTHROPATHY
     Dosage: 50 MG, QWK
     Route: 065
     Dates: start: 20140720, end: 20171010
  4. SULINDAC. [Concomitant]
     Active Substance: SULINDAC
     Dosage: UNK

REACTIONS (9)
  - Migraine [Unknown]
  - Rheumatoid arthritis [Recovering/Resolving]
  - Hypertension [Unknown]
  - Erythema [Recovering/Resolving]
  - Product storage error [Unknown]
  - Pruritus [Recovering/Resolving]
  - Exostosis [Not Recovered/Not Resolved]
  - Respiratory tract infection [Unknown]
  - Skin plaque [Recovering/Resolving]

NARRATIVE: CASE EVENT DATE: 2017
